FAERS Safety Report 23526907 (Version 1)
Quarter: 2024Q1

REPORT INFORMATION
  Report Type: Spontaneous
  Country: JP (occurrence: JP)
  Receive Date: 20240215
  Receipt Date: 20240215
  Transmission Date: 20240410
  Serious: Yes (Life-Threatening, Hospitalization, Other)
  Sender: FDA-Public Use
  Company Number: JP-HEXAL-SDZ2023JP043166AA

PATIENT
  Age: 41 Year
  Sex: Female

DRUGS (2)
  1. AMOXAPINE [Suspect]
     Active Substance: AMOXAPINE
     Indication: Depression
     Dosage: UNK
     Route: 065
  2. ZOLPIDEM TARTRATE [Suspect]
     Active Substance: ZOLPIDEM TARTRATE
     Indication: Depression
     Dosage: UNK
     Route: 048

REACTIONS (9)
  - Tachycardia [Unknown]
  - Dyskinesia [Unknown]
  - Myoclonus [Unknown]
  - Metabolic acidosis [Unknown]
  - Blood pressure decreased [Unknown]
  - Drug level increased [Unknown]
  - Altered state of consciousness [Unknown]
  - Seizure [Unknown]
  - Overdose [Unknown]
